FAERS Safety Report 5873014-2 (Version None)
Quarter: 2008Q3

REPORT INFORMATION
  Report Type: 
  Country: None (occurrence: None)
  Receive Date: 20080905
  Receipt Date: 20080827
  Transmission Date: 20090109
  Serious: Yes (Other)
  Sender: FDA-Public Use
  Company Number: GB-PFIZER INC-2008072225

PATIENT
  Sex: Female

DRUGS (1)
  1. KETAMINE HYDROCHLORIDE [Suspect]

REACTIONS (2)
  - MALAISE [None]
  - MEDICATION ERROR [None]
